FAERS Safety Report 9255683 (Version 1)
Quarter: 2013Q2

REPORT INFORMATION
  Report Type: Spontaneous
  Country: US (occurrence: US)
  Receive Date: 20130425
  Receipt Date: 20130425
  Transmission Date: 20140414
  Serious: Yes (Other)
  Sender: FDA-Public Use
  Company Number: PHHY2013US039004

PATIENT
  Age: 13 Year
  Sex: Male

DRUGS (3)
  1. VINCRISTINE [Suspect]
  2. PREDNISONE [Suspect]
  3. CYCLOPHOSPHAMIDE [Suspect]

REACTIONS (8)
  - Posterior reversible encephalopathy syndrome [Unknown]
  - Posturing [Recovered/Resolved]
  - Hemiparesis [Recovered/Resolved]
  - Hypertension [Unknown]
  - Headache [Unknown]
  - Asthenia [Unknown]
  - Photophobia [Unknown]
  - Unresponsive to stimuli [Unknown]
